FAERS Safety Report 5293792-3 (Version None)
Quarter: 2007Q2

REPORT INFORMATION
  Report Type: 
  Country: None (occurrence: None)
  Receive Date: 20070411
  Receipt Date: 20070405
  Transmission Date: 20071010
  Serious: Yes (Death)
  Sender: FDA-Public Use
  Company Number: US-PFIZER INC-2007027559

PATIENT
  Age: 29 Year
  Sex: Male

DRUGS (1)
  1. XANAX [Suspect]
     Dosage: TEXT:UNKNOWN

REACTIONS (2)
  - COMPLETED SUICIDE [None]
  - INTENTIONAL OVERDOSE [None]
